FAERS Safety Report 7920691-8 (Version None)
Quarter: 2011Q4

REPORT INFORMATION
  Report Type: 
  Country: None (occurrence: None)
  Receive Date: 20111117
  Receipt Date: 20111104
  Transmission Date: 20120403
  Serious: Yes (Hospitalization)
  Sender: FDA-Public Use
  Company Number: US-BAYER-201031840NA

PATIENT
  Age: 44 Year
  Sex: Female
  Weight: 127 kg

DRUGS (10)
  1. MINOCYCLINE HYDROCHLORIDE [Concomitant]
     Indication: ACNE
     Dosage: UNK
     Dates: start: 20081210
  2. PROPRANOLOL [Concomitant]
     Dosage: UNK
     Dates: start: 20081103, end: 20081130
  3. YAZ [Suspect]
     Dosage: UNK
     Dates: start: 20081216
  4. PERCOCET [Concomitant]
     Dosage: 1 EVERY 4 HOURS AS NEEDED
     Route: 048
  5. IMITREX [Concomitant]
     Dosage: 50 MG, 3X DAY AS NEEDED
     Route: 048
  6. FROVA [Concomitant]
     Indication: MIGRAINE
     Dosage: UNK
     Dates: start: 20081214
  7. TRAMADOL HCL [Concomitant]
     Dosage: 50 MG, EVERY 6 HOURS AS NEEDED
     Route: 048
  8. YAZ [Suspect]
     Indication: ACNE
     Dosage: UNK
     Dates: start: 20081020
  9. TOPAMAX [Concomitant]
     Dosage: UNK
     Dates: start: 20080129, end: 20081201
  10. MAXALT [Concomitant]
     Dosage: UNK
     Dates: start: 20081013

REACTIONS (3)
  - PULMONARY EMBOLISM [None]
  - ANXIETY [None]
  - DEPRESSION [None]
